FAERS Safety Report 10628742 (Version 1)
Quarter: 2014Q4

REPORT INFORMATION
  Report Type: Spontaneous
  Country: US (occurrence: US)
  Receive Date: 20141205
  Receipt Date: 20141205
  Transmission Date: 20150529
  Serious: Yes (Hospitalization)
  Sender: FDA-Public Use
  Company Number: US-BRISTOL-MYERS SQUIBB COMPANY-21467709

PATIENT
  Age: 73 Year
  Sex: Female

DRUGS (2)
  1. WARFARIN [Suspect]
     Active Substance: WARFARIN
  2. COUMADIN [Suspect]
     Active Substance: WARFARIN SODIUM
     Dosage: 5MG TABLETS, 1TAB AND 1.5TABS ON ALTERNATING DAYS

REACTIONS (2)
  - International normalised ratio fluctuation [Unknown]
  - Haemorrhage urinary tract [Unknown]
